FAERS Safety Report 20321590 (Version 1)
Quarter: 2022Q1

REPORT INFORMATION
  Report Type: Spontaneous
  Country: US (occurrence: None)
  Receive Date: 20220110
  Receipt Date: 20220110
  Transmission Date: 20220423
  Serious: Yes (Death, Hospitalization)
  Sender: FDA-Public Use
  Company Number: None

PATIENT
  Age: 48 Year
  Sex: Female

DRUGS (1)
  1. OPSUMIT [Suspect]
     Active Substance: MACITENTAN
     Indication: Pulmonary hypertension
     Dosage: 10MG QD ORAL?
     Route: 048
     Dates: start: 20200529, end: 20211230

REACTIONS (7)
  - Acute respiratory failure [None]
  - Mental status changes [None]
  - Tachypnoea [None]
  - Hypotension [None]
  - Bradycardia [None]
  - Hypoxia [None]
  - Respiratory acidosis [None]

NARRATIVE: CASE EVENT DATE: 20211230
